FAERS Safety Report 4727623-4 (Version None)
Quarter: 2005Q3

REPORT INFORMATION
  Report Type: 
  Country: None (occurrence: None)
  Receive Date: 20050728
  Receipt Date: 20050719
  Transmission Date: 20060218
  Serious: Yes (Hospitalization)
  Sender: FDA-Public Use
  Company Number: CA-SANOFI-SYNTHELABO-F01200501267

PATIENT
  Sex: Female

DRUGS (11)
  1. OXALIPLATIN [Suspect]
     Indication: COLON CANCER
     Dosage: 173MG 1 X PER 2 WEEK
     Route: 042
     Dates: start: 20050623, end: 20050623
  2. FLUOROURACIL [Suspect]
     Indication: COLON CANCER
     Dosage: 816MG BOLUS AND 1224.5 MG INFUSION EVERY 2 WEEKS
     Route: 042
     Dates: start: 20050623, end: 20050624
  3. LEUCOVORIN [Suspect]
     Indication: COLON CANCER
     Dosage: 408 MG 1 X PER 2 WEEK
     Route: 042
     Dates: start: 20050623, end: 20050624
  4. BEVACIZUMAB [Suspect]
     Indication: COLON CANCER
     Dosage: 462 MG Q2W
     Route: 042
     Dates: start: 20050623, end: 20050623
  5. PANTOPRAZOLE SODIUM [Concomitant]
     Dates: start: 20030615
  6. ARTHROTEC [Concomitant]
     Dates: start: 20030615
  7. ELTROXIN [Concomitant]
     Dates: start: 20030615
  8. HYDROCHLOROTHIAZIDE [Concomitant]
     Dates: start: 20010615
  9. FOSAMAX [Concomitant]
     Dates: start: 20040615
  10. DIOVAN [Concomitant]
     Dates: start: 20040615
  11. DOMPERIDONE [Concomitant]
     Dates: start: 20040615

REACTIONS (3)
  - HYPOCALCAEMIA [None]
  - HYPOKALAEMIA [None]
  - HYPOMAGNESAEMIA [None]
